FAERS Safety Report 18300525 (Version 4)
Quarter: 2020Q4

REPORT INFORMATION
  Report Type: Report from Study
  Country: US (occurrence: US)
  Receive Date: 20200923
  Receipt Date: 20201202
  Transmission Date: 20210113
  Serious: Yes (Hospitalization, Other)
  Sender: FDA-Public Use
  Company Number: NVSC2020US256084

PATIENT
  Sex: Female

DRUGS (2)
  1. COSENTYX [Suspect]
     Active Substance: SECUKINUMAB
     Indication: PSORIASIS
     Dosage: UNK UNK, Q4W
     Route: 058
  2. COSENTYX [Suspect]
     Active Substance: SECUKINUMAB
     Indication: PSORIASIS
     Dosage: 300 MG, QW (FOR 5 WEEKS)
     Route: 058

REACTIONS (14)
  - Blood pressure increased [Recovering/Resolving]
  - COVID-19 [Recovering/Resolving]
  - Illness [Recovering/Resolving]
  - Dehydration [Unknown]
  - Dyspnoea [Unknown]
  - Hypotension [Recovering/Resolving]
  - Pyrexia [Unknown]
  - Ageusia [Not Recovered/Not Resolved]
  - Pneumonia [Unknown]
  - SARS-CoV-2 test positive [Unknown]
  - Respiratory failure [Unknown]
  - Malaise [Unknown]
  - Chills [Recovering/Resolving]
  - Anosmia [Not Recovered/Not Resolved]
